FAERS Safety Report 12544219 (Version 1)
Quarter: 2016Q3

REPORT INFORMATION
  Report Type: Spontaneous
  Country: US (occurrence: None)
  Receive Date: 20160708
  Receipt Date: 20160708
  Transmission Date: 20161109
  Serious: No
  Sender: FDA-Public Use
  Company Number: None

PATIENT
  Age: 53 Year
  Sex: Female

DRUGS (7)
  1. LEVOTHYROXIN [Concomitant]
     Active Substance: LEVOTHYROXINE
  2. SIMVASTATIN. [Concomitant]
     Active Substance: SIMVASTATIN
  3. LAMOTRIGINE. [Concomitant]
     Active Substance: LAMOTRIGINE
  4. SOVALDI [Suspect]
     Active Substance: SOFOSBUVIR
     Indication: HEPATITIS C
     Route: 048
     Dates: start: 20160611
  5. RIBAVIRIN ZYDUS [Suspect]
     Active Substance: RIBAVIRIN
     Indication: HEPATITIS C
     Route: 048
     Dates: start: 20160611
  6. PAROXETINE. [Concomitant]
     Active Substance: PAROXETINE
  7. HYDROCOC/APAP [Concomitant]

REACTIONS (4)
  - Rash [None]
  - Unevaluable event [None]
  - Depression [None]
  - Dizziness [None]

NARRATIVE: CASE EVENT DATE: 201606
